FAERS Safety Report 5625945-6 (Version None)
Quarter: 2008Q1

REPORT INFORMATION
  Report Type: 
  Country: None (occurrence: None)
  Receive Date: 20080213
  Receipt Date: 20080213
  Transmission Date: 20080703
  Serious: Yes (Other)
  Sender: FDA-Public Use
  Company Number: None

PATIENT
  Age: 64 Year
  Sex: Male
  Weight: 95.2554 kg

DRUGS (4)
  1. GLUCOSAMINE SULFATE WITH MSM     SCHIFF [Suspect]
     Indication: ARTHRALGIA
     Dosage: 1 TABLET DAILY PO
     Route: 048
     Dates: start: 20060717, end: 20060721
  2. GLUCOSAMINE SULFATE WITH MSM     SCHIFF [Suspect]
     Indication: BACK PAIN
     Dosage: 1 TABLET DAILY PO
     Route: 048
     Dates: start: 20060717, end: 20060721
  3. GLUCOSAMINE SULFATE WITH MSM     SCHIFF [Suspect]
     Indication: ARTHRALGIA
     Dosage: 1 TABLET DAILY PO
     Route: 048
     Dates: start: 20060727, end: 20060727
  4. GLUCOSAMINE SULFATE WITH MSM     SCHIFF [Suspect]
     Indication: BACK PAIN
     Dosage: 1 TABLET DAILY PO
     Route: 048
     Dates: start: 20060727, end: 20060727

REACTIONS (1)
  - BLOOD URINE PRESENT [None]
